FAERS Safety Report 6122575-7 (Version None)
Quarter: 2009Q1

REPORT INFORMATION
  Report Type: 
  Country: None (occurrence: None)
  Receive Date: 20090316
  Receipt Date: 20090316
  Transmission Date: 20090719
  Serious: Yes (Death)
  Sender: FDA-Public Use
  Company Number: None

PATIENT
  Sex: Female
  Weight: 104 kg

DRUGS (12)
  1. METFORMIN HCL [Suspect]
     Indication: TYPE 2 DIABETES MELLITUS
     Dosage: 500MG ONCE DAILY PO
     Route: 048
     Dates: start: 20080401, end: 20090301
  2. CYMBALTA [Concomitant]
  3. BENICAR [Concomitant]
  4. TRICOR [Concomitant]
  5. FLUCONAZOLE [Concomitant]
  6. MULTI-VITAMIN [Concomitant]
  7. CRESTOR [Concomitant]
  8. PREMARIN [Concomitant]
  9. AMITRIPTYLINE [Concomitant]
  10. NEURONTIN [Concomitant]
  11. METFORMIN [Concomitant]
  12. NEXIUM [Concomitant]

REACTIONS (9)
  - CARDIAC ARREST [None]
  - DIALYSIS [None]
  - LACTIC ACIDOSIS [None]
  - METABOLIC ACIDOSIS [None]
  - MYOCARDIAL INFARCTION [None]
  - SEPSIS [None]
  - THERAPEUTIC AGENT TOXICITY [None]
  - UNRESPONSIVE TO STIMULI [None]
  - VENTRICULAR FIBRILLATION [None]
